FAERS Safety Report 8340829-0 (Version None)
Quarter: 2012Q1

REPORT INFORMATION
  Report Type: 
  Country: None (occurrence: None)
  Receive Date: 20120329
  Receipt Date: 20090812
  Transmission Date: 20120608
  Serious: Yes (Other)
  Sender: FDA-Public Use
  Company Number: PHEH2009US09207

PATIENT

DRUGS (1)
  1. EXELON [Suspect]

REACTIONS (4)
  - HALLUCINATION [None]
  - DRUG INEFFECTIVE [None]
  - DEPRESSION [None]
  - CONFUSIONAL STATE [None]
